FAERS Safety Report 5513484-2 (Version None)
Quarter: 2007Q4

REPORT INFORMATION
  Report Type: 
  Country: None (occurrence: None)
  Receive Date: 20071112
  Receipt Date: 20071102
  Transmission Date: 20080405
  Serious: Yes (Other)
  Sender: FDA-Public Use
  Company Number: US-PFIZER INC-2007093701

PATIENT
  Sex: Male
  Weight: 95.3 kg

DRUGS (2)
  1. LIPITOR [Suspect]
     Indication: BLOOD CHOLESTEROL INCREASED
     Route: 048
     Dates: start: 20070901, end: 20071002
  2. BENICAR [Concomitant]

REACTIONS (2)
  - BLOOD CREATINE PHOSPHOKINASE [None]
  - MYALGIA [None]
